FAERS Safety Report 19075329 (Version 1)
Quarter: 2021Q1

REPORT INFORMATION
  Report Type: Spontaneous
  Country: US (occurrence: US)
  Receive Date: 20210330
  Receipt Date: 20210330
  Transmission Date: 20210420
  Serious: No
  Sender: FDA-Public Use
  Company Number: US-ROCHE-2626543

PATIENT
  Sex: Male
  Weight: 65.83 kg

DRUGS (1)
  1. ERIVEDGE [Suspect]
     Active Substance: VISMODEGIB
     Indication: BASAL CELL CARCINOMA
     Dosage: 150 MG ONCE A DAY
     Route: 048
     Dates: start: 20190603

REACTIONS (1)
  - Visual impairment [Unknown]
